FAERS Safety Report 6266491-9 (Version None)
Quarter: 2009Q3

REPORT INFORMATION
  Report Type: 
  Country: None (occurrence: None)
  Receive Date: 20090710
  Receipt Date: 20090624
  Transmission Date: 20100115
  Serious: Yes (Death, Hospitalization)
  Sender: FDA-Public Use
  Company Number: 2009AP002405

PATIENT
  Age: 62 Year
  Sex: Female

DRUGS (2)
  1. METFORMIN HCL [Suspect]
  2. TROGLITAZONE [Suspect]
     Dosage: 600 MG; QD;, 400 MG; QD;

REACTIONS (10)
  - ACIDOSIS [None]
  - CARDIAC ARREST [None]
  - CARDIOMEGALY [None]
  - HEPATIC FAILURE [None]
  - LIVER INJURY [None]
  - PLEURAL EFFUSION [None]
  - PNEUMONIA [None]
  - PULMONARY OEDEMA [None]
  - RENAL FAILURE ACUTE [None]
  - RESPIRATORY FAILURE [None]
